FAERS Safety Report 15954596 (Version 3)
Quarter: 2019Q1

REPORT INFORMATION
  Report Type: Report from Study
  Country: None (occurrence: AU)
  Receive Date: 20190213
  Receipt Date: 20190301
  Transmission Date: 20190417
  Serious: Yes (Other)
  Sender: FDA-Public Use
  Company Number: AU-ABBVIE-19S-008-2659869-00

PATIENT
  Age: 78 Year
  Sex: Male

DRUGS (3)
  1. MOVICOL [Concomitant]
     Active Substance: POLYETHYLENE GLYCOL 3350\POTASSIUM CHLORIDE\SODIUM BICARBONATE\SODIUM CHLORIDE
     Indication: PRODUCT USED FOR UNKNOWN INDICATION
  2. DUODOPA [Suspect]
     Active Substance: CARBIDOPA\LEVODOPA
     Indication: PARKINSON^S DISEASE
     Dosage: MD-12.5ML
     Route: 050
     Dates: start: 20141001
  3. DUODOPA [Suspect]
     Active Substance: CARBIDOPA\LEVODOPA
     Dosage: MD REDUCED BY 1.5ML?16 HOUR INFUSION?100ML GEL CASSETTE
     Route: 050
     Dates: start: 20141001

REACTIONS (19)
  - Loss of consciousness [Recovered/Resolved]
  - Stoma site hypergranulation [Not Recovered/Not Resolved]
  - Constipation [Unknown]
  - Oedema peripheral [Recovered/Resolved]
  - Confusional state [Unknown]
  - Stoma site erythema [Unknown]
  - Excessive granulation tissue [Unknown]
  - Hypotension [Unknown]
  - Blood pressure decreased [Unknown]
  - Contusion [Unknown]
  - Stoma site discharge [Unknown]
  - Urinary incontinence [Unknown]
  - Device leakage [Recovered/Resolved]
  - Joint swelling [Unknown]
  - Balance disorder [Unknown]
  - Dizziness [Not Recovered/Not Resolved]
  - Secretion discharge [Unknown]
  - Device damage [Recovered/Resolved]
  - Fall [Unknown]

NARRATIVE: CASE EVENT DATE: 20190201
